FAERS Safety Report 17972341 (Version 2)
Quarter: 2020Q3

REPORT INFORMATION
  Report Type: Spontaneous
  Country: US (occurrence: US)
  Receive Date: 20200702
  Receipt Date: 20200718
  Transmission Date: 20201103
  Serious: Yes (Hospitalization, Other)
  Sender: FDA-Public Use
  Company Number: US-AUROBINDO-AUR-APL-2020-031374

PATIENT
  Age: 27 Year
  Sex: Male
  Weight: 80 kg

DRUGS (6)
  1. HYDROXYCHLOROQUINE [Suspect]
     Active Substance: HYDROXYCHLOROQUINE
     Indication: PRODUCT USED FOR UNKNOWN INDICATION
     Dosage: 20 HYDROXYCHLOROQUINE 200 MG TABLETS
     Route: 065
  2. HYDROXYCHLOROQUINE [Suspect]
     Active Substance: HYDROXYCHLOROQUINE
     Dosage: 20 DOSAGE FORM, 1 TOTAL
     Route: 048
  3. METHOTREXATE TABLETS USP 2.5MG [Suspect]
     Active Substance: METHOTREXATE
     Dosage: 30 DOSAGE FORM, 1 TOTAL
     Route: 048
  4. METHOTREXATE TABLETS USP 2.5MG [Suspect]
     Active Substance: METHOTREXATE
     Indication: PRODUCT USED FOR UNKNOWN INDICATION
     Dosage: 30 METHOTREXATE 2.5 MG TABLETS
     Route: 065
  5. PREDNISONE. [Suspect]
     Active Substance: PREDNISONE
     Indication: PRODUCT USED FOR UNKNOWN INDICATION
     Dosage: UNK (30 PREDNISONE 10 MG TABLETS)
     Route: 065
  6. PREDNISONE. [Suspect]
     Active Substance: PREDNISONE
     Dosage: 30 DOSAGE FORM, 1 TOTAL
     Route: 048

REACTIONS (13)
  - Haemoglobin decreased [Recovered/Resolved]
  - Platelet count decreased [Recovered/Resolved]
  - Haematotoxicity [Recovered/Resolved]
  - Muscular weakness [Unknown]
  - Electrocardiogram QT prolonged [Recovered/Resolved]
  - Treatment noncompliance [Unknown]
  - Electrocardiogram QRS complex prolonged [Recovered/Resolved]
  - Somnolence [Unknown]
  - Hypokalaemia [Unknown]
  - Intentional overdose [Recovered/Resolved]
  - Ventricular tachycardia [Unknown]
  - Vomiting [Unknown]
  - Nausea [Unknown]
